FAERS Safety Report 19935324 (Version 5)
Quarter: 2022Q1

REPORT INFORMATION
  Report Type: Spontaneous
  Country: US (occurrence: US)
  Receive Date: 20211008
  Receipt Date: 20220326
  Transmission Date: 20220423
  Serious: No
  Sender: FDA-Public Use
  Company Number: US-SA-SAC20211005000786

PATIENT
  Age: 28 Year
  Sex: Male

DRUGS (1)
  1. DUPIXENT [Suspect]
     Active Substance: DUPILUMAB
     Indication: Dermatitis atopic
     Dosage: 300 MG, QOW
     Route: 058
     Dates: start: 20210908

REACTIONS (4)
  - Dry eye [Not Recovered/Not Resolved]
  - Dermatitis atopic [Unknown]
  - Product dose omission issue [Unknown]
  - Eye inflammation [Unknown]

NARRATIVE: CASE EVENT DATE: 20210101
